FAERS Safety Report 7100146-3 (Version None)
Quarter: 2010Q4

REPORT INFORMATION
  Report Type: 
  Country: None (occurrence: None)
  Receive Date: 20101112
  Receipt Date: 20100514
  Transmission Date: 20110411
  Serious: No
  Sender: FDA-Public Use
  Company Number: A0859768A

PATIENT

DRUGS (1)
  1. COREG [Suspect]
     Dosage: 100MG PER DAY
     Route: 048

REACTIONS (2)
  - COUGH [None]
  - FATIGUE [None]
